FAERS Safety Report 8347703-4 (Version None)
Quarter: 2012Q2

REPORT INFORMATION
  Report Type: 
  Country: None (occurrence: None)
  Receive Date: 20120509
  Receipt Date: 20120426
  Transmission Date: 20120825
  Serious: Yes (Death, Hospitalization, Other)
  Sender: FDA-Public Use
  Company Number: US-ELI_LILLY_AND_COMPANY-US201111005377

PATIENT
  Sex: Female
  Weight: 93 kg

DRUGS (14)
  1. FORTEO [Suspect]
     Dosage: 20 UG, QD
     Route: 065
  2. OXYCODONE HCL [Concomitant]
     Dosage: UNK, AS NEEDED BID
  3. SIMVASTATIN [Concomitant]
     Dosage: UNK, QD
  4. ASPIRIN [Concomitant]
  5. FORTEO [Suspect]
     Dosage: 20 UG, QD
     Route: 065
  6. BISOPROLOL FUMARATE [Concomitant]
     Dosage: 0.5 MG, QD
  7. CALCIUM [Concomitant]
     Dosage: 600 MG, UNKNOWN
  8. PREDNISONE [Concomitant]
     Dosage: 6 DF, OTHER
  9. ATENOLOL [Concomitant]
     Dosage: UNK, QD
  10. VITAMIN B-12 [Concomitant]
  11. ANABOLIC STEROIDS [Concomitant]
  12. FORTEO [Suspect]
     Dosage: 20 UG, QD
     Route: 065
  13. FORTEO [Suspect]
     Indication: OSTEOPOROSIS
     Dosage: 20 UG, QD
     Route: 065
     Dates: start: 20110901
  14. FORTEO [Suspect]
     Dosage: 20 UG, QD
     Route: 065

REACTIONS (13)
  - HYPERSENSITIVITY [None]
  - DYSPHONIA [None]
  - PNEUMONIA [None]
  - CONFUSIONAL STATE [None]
  - SPINAL FRACTURE [None]
  - MULTIPLE FRACTURES [None]
  - INJECTION SITE HAEMATOMA [None]
  - DEATH [None]
  - MUSCULOSKELETAL PAIN [None]
  - SURGERY [None]
  - MYOCARDIAL INFARCTION [None]
  - OXYGEN SATURATION DECREASED [None]
  - BACK DISORDER [None]
